FAERS Safety Report 9472953 (Version 1)
Quarter: 2013Q3

REPORT INFORMATION
  Report Type: Spontaneous
  Country: US (occurrence: US)
  Receive Date: 20130823
  Receipt Date: 20130823
  Transmission Date: 20140515
  Serious: Yes (Hospitalization)
  Sender: FDA-Public Use
  Company Number: US-BRISTOL-MYERS SQUIBB COMPANY-17268251

PATIENT
  Age: 71 Year
  Sex: Female
  Weight: 56.69 kg

DRUGS (3)
  1. SPRYCEL [Suspect]
     Indication: CHRONIC MYELOID LEUKAEMIA
     Dates: start: 201209
  2. NORPACE [Suspect]
     Indication: CARDIAC DISORDER
  3. GLEEVEC [Concomitant]

REACTIONS (1)
  - Atrial fibrillation [Unknown]
